FAERS Safety Report 5194552-4 (Version None)
Quarter: 2006Q4

REPORT INFORMATION
  Report Type: 
  Country: None (occurrence: None)
  Receive Date: 20061221
  Receipt Date: 20061208
  Transmission Date: 20070319
  Serious: Yes (Other)
  Sender: FDA-Public Use
  Company Number: 15352

PATIENT
  Age: 35 Year
  Sex: Female
  Weight: 97.6 kg

DRUGS (2)
  1. EPIRUBICIN [Suspect]
     Indication: BREAST CANCER
     Dosage: 200 MG 3/WK IV
     Route: 042
     Dates: start: 20060614, end: 20060818
  2. LEVOTHYROXINE SODIUM [Concomitant]

REACTIONS (1)
  - LIMB DISCOMFORT [None]
